FAERS Safety Report 4750049-4 (Version None)
Quarter: 2005Q3

REPORT INFORMATION
  Report Type: 
  Country: None (occurrence: None)
  Receive Date: 20050822
  Receipt Date: 20050805
  Transmission Date: 20060218
  Serious: Yes (Death)
  Sender: FDA-Public Use
  Company Number: 2005-0008601

PATIENT
  Sex: Male

DRUGS (7)
  1. VIREAD [Suspect]
     Indication: HIV INFECTION
     Dosage: 300 MG, 1 IN 1 D, ORAL
     Route: 048
     Dates: start: 20040621, end: 20041107
  2. VIDEX EC [Concomitant]
  3. EPIVIR [Concomitant]
  4. ZIAGEN [Concomitant]
  5. KALETRA [Concomitant]
  6. RECOMBINATE [Concomitant]
  7. BENAMBAX (PENTAMIDINE) [Concomitant]

REACTIONS (4)
  - ASCITES [None]
  - COMA HEPATIC [None]
  - HEPATIC CIRRHOSIS [None]
  - HEPATIC ENCEPHALOPATHY [None]
